FAERS Safety Report 5312468-7 (Version None)
Quarter: 2007Q2

REPORT INFORMATION
  Report Type: 
  Country: None (occurrence: None)
  Receive Date: 20070430
  Receipt Date: 20061128
  Transmission Date: 20071010
  Serious: No
  Sender: FDA-Public Use
  Company Number: 2006UW26484

PATIENT
  Age: 47 Year
  Sex: Female
  Weight: 74.8 kg

DRUGS (1)
  1. NEXIUM [Suspect]
     Indication: GASTROOESOPHAGEAL REFLUX DISEASE
     Route: 048

REACTIONS (5)
  - ABDOMINAL PAIN UPPER [None]
  - BREATH ODOUR [None]
  - DRY MOUTH [None]
  - FLATULENCE [None]
  - SENSATION OF HEAVINESS [None]
